FAERS Safety Report 8975888 (Version 2)
Quarter: 2013Q1

REPORT INFORMATION
  Report Type: Spontaneous
  Country: US (occurrence: US)
  Receive Date: 20121219
  Receipt Date: 20130108
  Transmission Date: 20140127
  Serious: Yes (Other)
  Sender: FDA-Public Use
  Company Number: US-GLAXOSMITHKLINE-A1005718A

PATIENT
  Age: 77 Year
  Sex: Female

DRUGS (17)
  1. ADVAIR [Suspect]
     Indication: CHRONIC OBSTRUCTIVE PULMONARY DISEASE
     Dosage: 1PUFF TWICE PER DAY
     Route: 055
     Dates: end: 20121116
  2. SPIRIVA [Concomitant]
  3. SINGULAIR [Concomitant]
  4. OMEPRAZOLE [Concomitant]
  5. SIMVASTATIN [Concomitant]
  6. ALBUTEROL [Concomitant]
  7. DIOVAN HCT [Concomitant]
  8. DIOVAN [Concomitant]
  9. PREMARIN [Concomitant]
  10. BYSTOLIC [Concomitant]
  11. LASIX [Concomitant]
  12. POTASSIUM [Concomitant]
  13. TESSALON PEARLS [Concomitant]
  14. MULTIVITAMIN [Concomitant]
  15. CALCIUM + D [Concomitant]
  16. DOCUSATE SODIUM [Concomitant]
  17. LORATADINE [Concomitant]

REACTIONS (3)
  - Candida infection [Recovering/Resolving]
  - Aphonia [Recovering/Resolving]
  - Dysphonia [Recovering/Resolving]
